FAERS Safety Report 6755203-8 (Version None)
Quarter: 2010Q2

REPORT INFORMATION
  Report Type: 
  Country: None (occurrence: None)
  Receive Date: 20100604
  Receipt Date: 20100526
  Transmission Date: 20101027
  Serious: No
  Sender: FDA-Public Use
  Company Number: US-BIOGENIDEC-2010BI017777

PATIENT
  Age: 49 Year
  Sex: Female

DRUGS (2)
  1. TYSABRI [Suspect]
     Indication: MULTIPLE SCLEROSIS
     Route: 042
     Dates: start: 20050218, end: 20050201
  2. TYSABRI [Suspect]
     Route: 042
     Dates: start: 20100311

REACTIONS (3)
  - ADVERSE REACTION [None]
  - DYSPNOEA [None]
  - FLUSHING [None]
